FAERS Safety Report 9233474 (Version 1)
Quarter: 2013Q2

REPORT INFORMATION
  Report Type: Spontaneous
  Country: NL (occurrence: NL)
  Receive Date: 20130416
  Receipt Date: 20130416
  Transmission Date: 20140414
  Serious: Yes (Hospitalization, Other)
  Sender: FDA-Public Use
  Company Number: NL-BRISTOL-MYERS SQUIBB COMPANY-18585828

PATIENT
  Age: 69 Year
  Sex: Female

DRUGS (11)
  1. BYDUREON [Suspect]
     Dates: start: 201111
  2. METFORMIN [Concomitant]
  3. AMLODIPINE [Concomitant]
  4. FOSINOPRIL SODIUM [Concomitant]
  5. THYRAX [Concomitant]
     Dosage: 1DF = 0.1
  6. VENTOLIN [Concomitant]
  7. PAROXETINE [Concomitant]
  8. HYDROXOCOBALAMIN [Concomitant]
  9. CRESTOR [Concomitant]
  10. EXENATIDE [Concomitant]
     Dosage: INJECTION
  11. NOVOMIX [Concomitant]

REACTIONS (1)
  - Lung disorder [Not Recovered/Not Resolved]
